FAERS Safety Report 8111884-8 (Version None)
Quarter: 2012Q1

REPORT INFORMATION
  Report Type: 
  Country: None (occurrence: None)
  Receive Date: 20120203
  Receipt Date: 20120124
  Transmission Date: 20120608
  Serious: Yes (Life-Threatening)
  Sender: FDA-Public Use
  Company Number: FR-SANOFI-AVENTIS-2012SA004924

PATIENT
  Age: 68 Year
  Sex: Female

DRUGS (9)
  1. ARAVA [Suspect]
     Indication: RHEUMATOID ARTHRITIS
     Route: 048
     Dates: start: 20080101, end: 20110901
  2. ETANERCEPT [Suspect]
     Indication: RHEUMATOID ARTHRITIS
     Route: 058
     Dates: start: 20080101, end: 20110927
  3. TRAMADOL HCL [Concomitant]
  4. LASIX [Concomitant]
  5. DUOPLAVIN [Suspect]
  6. BISOPROLOL [Concomitant]
  7. EZETIMIBE [Suspect]
  8. PREDNISONE TAB [Suspect]
     Indication: RHEUMATOID ARTHRITIS
     Route: 048
     Dates: start: 20080101, end: 20110927
  9. LEVOTHYROXINE SODIUM [Concomitant]

REACTIONS (5)
  - INFECTIOUS PERITONITIS [None]
  - MALNUTRITION [None]
  - PERITONEAL ABSCESS [None]
  - IMPAIRED HEALING [None]
  - DIVERTICULITIS [None]
